FAERS Safety Report 25647941 (Version 1)
Quarter: 2025Q3

REPORT INFORMATION
  Report Type: Spontaneous
  Country: US (occurrence: US)
  Receive Date: 20250806
  Receipt Date: 20250806
  Transmission Date: 20251020
  Serious: No
  Sender: Haleon PLC
  Company Number: US-HALEON-2256174

PATIENT

DRUGS (1)
  1. TUMS CHEWY BITES [Suspect]
     Active Substance: CALCIUM CARBONATE
     Indication: Flatulence

REACTIONS (1)
  - Therapeutic response unexpected [Unknown]
